FAERS Safety Report 6451616-2 (Version None)
Quarter: 2009Q4

REPORT INFORMATION
  Report Type: 
  Country: None (occurrence: None)
  Receive Date: 20091120
  Receipt Date: 20091120
  Transmission Date: 20100525
  Serious: Yes (Other)
  Sender: FDA-Public Use
  Company Number: None

PATIENT
  Sex: Male
  Weight: 139.7079 kg

DRUGS (2)
  1. BACTRIM [Suspect]
     Indication: SKIN DISORDER
     Dosage: 1 TAB BID PO
     Route: 048
     Dates: start: 20091106, end: 20091108
  2. BACTRIM [Suspect]
     Indication: STAPHYLOCOCCAL INFECTION
     Dosage: 1 TAB BID PO
     Route: 048
     Dates: start: 20091106, end: 20091108

REACTIONS (1)
  - STEVENS-JOHNSON SYNDROME [None]
